FAERS Safety Report 11465090 (Version 1)
Quarter: 2015Q3

REPORT INFORMATION
  Report Type: Spontaneous
  Country: CA (occurrence: CA)
  Receive Date: 20150907
  Receipt Date: 20150907
  Transmission Date: 20151125
  Serious: Yes (Hospitalization)
  Sender: FDA-Public Use
  Company Number: CA-HOSPIRA-2978273

PATIENT

DRUGS (2)
  1. SODIUM CHLORIDE. [Suspect]
     Active Substance: SODIUM CHLORIDE
     Indication: PRODUCT USED FOR UNKNOWN INDICATION
     Dosage: 250 ML (WITH IMIPENEM)
     Route: 041
     Dates: start: 20150808
  2. IMIPENEM AND CILASTATIN [Suspect]
     Active Substance: CILASTATIN SODIUM\IMIPENEM
     Indication: ANTIBIOTIC THERAPY
     Dosage: 250 ML (WITH SODIUM CHLORIDE)
     Route: 041
     Dates: start: 20150808

REACTIONS (3)
  - Incorrect dose administered [Unknown]
  - Incorrect drug administration rate [Unknown]
  - Device computer issue [Unknown]

NARRATIVE: CASE EVENT DATE: 20150808
